FAERS Safety Report 25720812 (Version 1)
Quarter: 2025Q3

REPORT INFORMATION
  Report Type: Spontaneous
  Country: JP (occurrence: JP)
  Receive Date: 20250825
  Receipt Date: 20250825
  Transmission Date: 20251020
  Serious: Yes (Other)
  Sender: REGENERON
  Company Number: JP-BAYER-2025A091920

PATIENT

DRUGS (1)
  1. EYLEA [Suspect]
     Active Substance: AFLIBERCEPT
     Indication: Product used for unknown indication
     Dates: start: 20250710

REACTIONS (2)
  - Vitreous prolapse [Unknown]
  - Administration site extravasation [Unknown]
